FAERS Safety Report 6253895-3 (Version None)
Quarter: 2009Q3

REPORT INFORMATION
  Report Type: 
  Country: None (occurrence: None)
  Receive Date: 20090701
  Receipt Date: 20090701
  Transmission Date: 20100115
  Serious: No
  Sender: FDA-Public Use
  Company Number: None

PATIENT
  Sex: Female
  Weight: 102.7 kg

DRUGS (2)
  1. NORVASC [Suspect]
     Indication: HYPERTENSION
     Dosage: 10MG DAILY ORAL
     Route: 048
     Dates: start: 20090516
  2. NORVASC [Suspect]
     Indication: POST PROCEDURAL HYPOTHYROIDISM
     Dosage: 10MG DAILY ORAL
     Route: 048
     Dates: start: 20090516

REACTIONS (2)
  - OESOPHAGEAL PAIN [None]
  - PRODUCT SUBSTITUTION ISSUE [None]
